FAERS Safety Report 8919880 (Version 1)
Quarter: 2012Q4

REPORT INFORMATION
  Report Type: 
  Country: US (occurrence: US)
  Receive Date: 20121121
  Receipt Date: 20121121
  Transmission Date: 20130627
  Serious: No
  Sender: FDA-Public Use
  Company Number: US-PFIZER INC-2012290332

PATIENT
  Age: 52 Year
  Sex: Male
  Weight: 108.84 kg

DRUGS (3)
  1. VIAGRA [Suspect]
     Indication: ERECTILE DYSFUNCTION
     Dosage: 100 mg, as needed
     Route: 048
     Dates: start: 201111
  2. GLIPIZIDE [Concomitant]
     Dosage: UNK
  3. METFORMIN [Concomitant]
     Dosage: UNK

REACTIONS (3)
  - Blood pressure abnormal [Unknown]
  - Feeling abnormal [Unknown]
  - Drug ineffective [Unknown]
